FAERS Safety Report 22269250 (Version 1)
Quarter: 2023Q2

REPORT INFORMATION
  Report Type: Spontaneous
  Country: US (occurrence: US)
  Receive Date: 20230501
  Receipt Date: 20230501
  Transmission Date: 20230722
  Serious: Yes (Hospitalization, Disabling)
  Sender: FDA-Public Use
  Company Number: US-MYLANLABS-2023M1044741

PATIENT
  Age: 49 Year
  Sex: Female

DRUGS (7)
  1. THIAMINE [Suspect]
     Active Substance: THIAMINE
     Indication: Vitamin supplementation
     Dosage: 150 MILLIGRAM, BID (SUPPLEMENT 1) ISOLATED LIQUID THIAMINE HYDROCHLORIDE
     Route: 048
  2. THIAMINE [Suspect]
     Active Substance: THIAMINE
     Indication: Prophylaxis
     Dosage: 150 MILLIGRAM, BID (SUPPLEMENT 4)  ISOLATED LIQUID THIAMINE HYDROCHLORIDE
     Route: 048
  3. THIAMINE [Suspect]
     Active Substance: THIAMINE
     Indication: Wernicke-Korsakoff syndrome
     Dosage: 150 MILLIGRAM, QD (AS A PART OF MULTIVITAMIN)
     Route: 048
  4. CALCIUM [Concomitant]
     Active Substance: CALCIUM
     Indication: Mineral supplementation
     Dosage: UNK, BID (SUPPLEMENT 2)
     Route: 048
  5. MAGNESIUM [Concomitant]
     Active Substance: MAGNESIUM
     Indication: Mineral supplementation
     Dosage: UNK, BID (SUPPLEMENT 2)
     Route: 048
  6. IRON [Concomitant]
     Active Substance: IRON
     Indication: Mineral supplementation
     Dosage: 1.12 MILLIGRAM
     Route: 048
  7. VITAMIN B12 [Concomitant]
     Active Substance: CYANOCOBALAMIN
     Indication: Vitamin supplementation
     Dosage: 1000 MICROGRAM, Q3MONTHS (SUPPLEMENT 3)
     Route: 058

REACTIONS (1)
  - Drug ineffective [Unknown]
